FAERS Safety Report 9671947 (Version 1)
Quarter: 2013Q4

REPORT INFORMATION
  Report Type: Spontaneous
  Country: DE (occurrence: None)
  Receive Date: 20131104
  Receipt Date: 20131104
  Transmission Date: 20140711
  Serious: Yes (Hospitalization)
  Sender: FDA-Public Use
  Company Number: DE-JNJFOC-20131013724

PATIENT
  Age: 78 Year
  Sex: Male
  Weight: 67.3 kg

DRUGS (2)
  1. DECITABINE (DECITABINE) LYOPHILIZED POWDER [Suspect]
     Indication: ACUTE MYELOID LEUKAEMIA
     Route: 042
     Dates: start: 20130930
  2. ATRA [Suspect]
     Indication: ACUTE MYELOID LEUKAEMIA
     Dates: start: 20131005

REACTIONS (1)
  - Phlebitis [None]
